FAERS Safety Report 5667487-8 (Version None)
Quarter: 2008Q1

REPORT INFORMATION
  Report Type: 
  Country: None (occurrence: None)
  Receive Date: 20080315
  Receipt Date: 20080125
  Transmission Date: 20080703
  Serious: No
  Sender: FDA-Public Use
  Company Number: US-ABBOTT-08P-163-0435151-00

PATIENT
  Sex: Female
  Weight: 56.75 kg

DRUGS (15)
  1. HUMIRA [Suspect]
     Indication: CROHN'S DISEASE
     Route: 058
     Dates: start: 20080115
  2. PENSAA [Concomitant]
     Indication: CROHN'S DISEASE
  3. BUDESONIDE [Concomitant]
     Indication: CROHN'S DISEASE
     Route: 048
  4. TANDEM [Concomitant]
     Indication: MINERAL SUPPLEMENTATION
     Route: 048
  5. PREDNISONE [Concomitant]
     Indication: JOINT SWELLING
     Route: 048
  6. PREDNISONE [Concomitant]
     Indication: CROHN'S DISEASE
  7. PREDNISONE [Concomitant]
     Indication: OEDEMA PERIPHERAL
  8. PANTOPRAZOLE SODIUM [Concomitant]
     Indication: GASTROOESOPHAGEAL REFLUX DISEASE
     Route: 048
  9. ZEGERID [Concomitant]
     Indication: GASTROOESOPHAGEAL REFLUX DISEASE
     Route: 048
  10. ESOMEPRAZOLE MAGNESIUM [Concomitant]
     Indication: GASTROOESOPHAGEAL REFLUX DISEASE
     Route: 048
  11. OXYCODONE HCL [Concomitant]
     Indication: CROHN'S DISEASE
     Route: 048
  12. OXYCODONE HCL [Concomitant]
     Indication: PAIN
  13. OXYCODONE HCL [Concomitant]
     Route: 048
  14. OXYCODONE HCL [Concomitant]
  15. ZOLPIDEM TARTRATE [Concomitant]
     Indication: INSOMNIA
     Route: 048

REACTIONS (3)
  - ARTHRALGIA [None]
  - JOINT SWELLING [None]
  - OEDEMA PERIPHERAL [None]
